FAERS Safety Report 19980487 (Version 2)
Quarter: 2021Q4

REPORT INFORMATION
  Report Type: Report from Study
  Country: US (occurrence: US)
  Receive Date: 20211021
  Receipt Date: 20211021
  Transmission Date: 20220303
  Serious: Yes (Other)
  Sender: FDA-Public Use
  Company Number: USA-RTIINT001-2021-US-000033

PATIENT
  Age: 1 Day
  Sex: Female
  Weight: .56 kg

DRUGS (2)
  1. CUROSURF [Suspect]
     Active Substance: PORACTANT ALFA
     Dosage: PER PROTOCOL DOSE 1: CUROSURF 2.5 ML/KG +/- BUDESONIDE 0.25 MG/KG IN A VOLUME OF 1ML/KG (2.0ML TOTA
     Route: 007
     Dates: start: 20210927, end: 20210927
  2. BUDESONIDE [Suspect]
     Active Substance: BUDESONIDE

REACTIONS (1)
  - Hyperglycaemia [Unknown]

NARRATIVE: CASE EVENT DATE: 20210928
